FAERS Safety Report 15263797 (Version 36)
Quarter: 2025Q4

REPORT INFORMATION
  Report Type: Report from Study
  Country: EU (occurrence: EU)
  Receive Date: 20180810
  Receipt Date: 20251009
  Transmission Date: 20260117
  Serious: Yes (Hospitalization, Other)
  Sender: ROCHE
  Company Number: None

PATIENT
  Age: 37 Year
  Sex: Female
  Weight: 73 kg

DRUGS (43)
  1. OCREVUS [Suspect]
     Active Substance: OCRELIZUMAB
     Indication: Relapsing-remitting multiple sclerosis
     Dosage: SECOND INFUSION ON 22/MAY/2018
     Route: 042
     Dates: start: 20180508, end: 201805
  2. OCREVUS [Suspect]
     Active Substance: OCRELIZUMAB
     Route: 042
     Dates: start: 20181126
  3. OCREVUS [Suspect]
     Active Substance: OCRELIZUMAB
     Route: 042
     Dates: start: 20190605
  4. OCREVUS [Suspect]
     Active Substance: OCRELIZUMAB
     Route: 042
     Dates: start: 20180522
  5. OCREVUS [Suspect]
     Active Substance: OCRELIZUMAB
     Route: 042
     Dates: start: 202006
  6. OCREVUS [Suspect]
     Active Substance: OCRELIZUMAB
     Route: 042
     Dates: start: 20210604
  7. OCREVUS [Suspect]
     Active Substance: OCRELIZUMAB
     Route: 042
     Dates: start: 20181126
  8. OCREVUS [Suspect]
     Active Substance: OCRELIZUMAB
     Route: 042
     Dates: start: 20190506
  9. OCREVUS [Suspect]
     Active Substance: OCRELIZUMAB
     Route: 042
     Dates: start: 20180518
  10. COMIRNATY (TOZINAMERAN) [Suspect]
     Active Substance: TOZINAMERAN
     Indication: Product used for unknown indication
     Route: 065
  11. COMIRNATY (TOZINAMERAN) [Suspect]
     Active Substance: TOZINAMERAN
     Route: 065
  12. LYRICA [Suspect]
     Active Substance: PREGABALIN
     Indication: Pain
     Dosage: 125 MG DAILY (50 MG IN THE MORNING, 75 MG IN THE EVENING)
     Route: 048
  13. LYRICA [Suspect]
     Active Substance: PREGABALIN
     Dosage: 25 MG IN THE MORNING, 75 MG IN THE EVENING?END DATE --2019
     Route: 048
  14. LYRICA [Suspect]
     Active Substance: PREGABALIN
     Route: 048
  15. LYRICA [Suspect]
     Active Substance: PREGABALIN
     Dosage: 25 MG IN THE MORNING, 75 MG IN THE EVENING
     Route: 048
     Dates: end: 2019
  16. LYRICA [Suspect]
     Active Substance: PREGABALIN
     Dosage: 200 MG, DAILY (IN THE MORNING 75 MG, 125 MG IN THE EVENING)
     Route: 048
  17. LYRICA [Suspect]
     Active Substance: PREGABALIN
     Dosage: 250 MG, DAILY (100MG IN THE MORNING-0-150MG IN THE EVENING)
     Route: 048
  18. LYRICA [Suspect]
     Active Substance: PREGABALIN
     Route: 048
  19. LYRICA [Suspect]
     Active Substance: PREGABALIN
     Dosage: 250 MG, DAILY (100MG IN THE MORNING-0-150MG IN THE EVENING)
     Route: 048
  20. LYRICA [Suspect]
     Active Substance: PREGABALIN
     Dosage: 125 MG DAILY (50 MG IN THE MORNING, 75 MG IN THE EVENING)
     Route: 048
  21. LYRICA [Suspect]
     Active Substance: PREGABALIN
     Route: 048
  22. LYRICA [Suspect]
     Active Substance: PREGABALIN
     Route: 048
  23. OXCARBAZEPINE [Concomitant]
     Active Substance: OXCARBAZEPINE
     Indication: Trigeminal neuralgia
     Dosage: 1-0-1
  24. OXCARBAZEPINE [Concomitant]
     Active Substance: OXCARBAZEPINE
     Indication: Pain
     Dosage: 150 MG-0-100 MG
  25. OXCARBAZEPINE [Concomitant]
     Active Substance: OXCARBAZEPINE
     Dosage: 1-0-1
  26. OXCARBAZEPINE [Concomitant]
     Active Substance: OXCARBAZEPINE
     Dosage: 150 MG-0-100 MG
  27. CARVEDILOL [Concomitant]
     Active Substance: CARVEDILOL
     Indication: Hypertension
     Dosage: IN THE MORNING
  28. CARVEDILOL [Concomitant]
     Active Substance: CARVEDILOL
     Route: 048
  29. CARVEDILOL [Concomitant]
     Active Substance: CARVEDILOL
     Dosage: 1-0-0
     Route: 048
  30. CARVEDILOL [Concomitant]
     Active Substance: CARVEDILOL
     Indication: Hypertension
     Dosage: 1-0-0
     Route: 048
  31. CARVEDILOL [Concomitant]
     Active Substance: CARVEDILOL
     Dosage: IN THE MORNING
  32. CARVEDILOL [Concomitant]
     Active Substance: CARVEDILOL
     Route: 048
  33. DILTIAZEM [Concomitant]
     Active Substance: DILTIAZEM
  34. NORSPAN [Concomitant]
     Active Substance: BUPRENORPHINE
     Indication: Pain
     Dosage: WEEKLY REPLACEMENT?(PAIN PATCH; CHANGED 1X WEEKLY)
     Route: 062
  35. LEVOTHYROXINE [Concomitant]
     Active Substance: LEVOTHYROXINE
     Indication: Hypothyroidism
     Dosage: 1-0-0
     Route: 048
  36. LEVOTHYROXINE [Concomitant]
     Active Substance: LEVOTHYROXINE
     Dosage: 1-0-0
     Route: 048
  37. PREGABALIN [Concomitant]
     Active Substance: PREGABALIN
  38. NORSPAN [Concomitant]
     Active Substance: BUPRENORPHINE
     Indication: Pain
     Dosage: WEEKLY REPLACEMENT?(PAIN PATCH; CHANGED 1X WEEKLY)
     Route: 062
  39. IBUPROFEN [Concomitant]
     Active Substance: IBUPROFEN
  40. PARACODIN [Concomitant]
  41. BACLOFEN [Concomitant]
     Active Substance: BACLOFEN
     Indication: Muscle spasticity
     Dosage: 0-0-1
  42. BACLOFEN [Concomitant]
     Active Substance: BACLOFEN
     Dosage: 0-0-1
  43. PARACODIN [Concomitant]

REACTIONS (68)
  - Blood cholesterol increased [Recovering/Resolving]
  - Fluid retention [Not Recovered/Not Resolved]
  - B-lymphocyte count decreased [Unknown]
  - Hypotension [Not Recovered/Not Resolved]
  - Fatigue [Recovered/Resolved]
  - Renal cyst [Not Recovered/Not Resolved]
  - Lymphoedema [Not Recovered/Not Resolved]
  - Multiple sclerosis relapse [Not Recovered/Not Resolved]
  - Optic neuritis [Recovering/Resolving]
  - Auditory disorder [Recovered/Resolved]
  - Eosinophilic oesophagitis [Not Recovered/Not Resolved]
  - Oedema [Not Recovered/Not Resolved]
  - Gait disturbance [Recovering/Resolving]
  - Menstruation delayed [Recovered/Resolved]
  - Lipoedema [Not Recovered/Not Resolved]
  - Tooth dislocation [Not Recovered/Not Resolved]
  - Asthenia [Recovered/Resolved]
  - Viral titre decreased [Recovered/Resolved]
  - Chest pain [Not Recovered/Not Resolved]
  - Pyrexia [Recovered/Resolved]
  - Vascular calcification [Not Recovered/Not Resolved]
  - Tooth fracture [Recovered/Resolved]
  - Dental fistula [Recovered/Resolved]
  - Atrioventricular block [Unknown]
  - Abscess oral [Recovered/Resolved]
  - Abscess [Recovered/Resolved]
  - Oesophageal pain [Recovered/Resolved]
  - Nausea [Recovered/Resolved]
  - Fatigue [Recovered/Resolved]
  - Paraesthesia [Unknown]
  - Visual impairment [Not Recovered/Not Resolved]
  - Abdominal pain upper [Recovered/Resolved]
  - Hordeolum [Recovering/Resolving]
  - Skin papilloma [Recovered/Resolved]
  - Back pain [Recovered/Resolved]
  - Musculoskeletal chest pain [Recovered/Resolved]
  - SARS-CoV-2 antibody test negative [Not Recovered/Not Resolved]
  - Drug ineffective [Unknown]
  - Neurodermatitis [Recovered/Resolved]
  - Eczema [Recovered/Resolved]
  - Pulpitis dental [Recovered/Resolved]
  - Automatic bladder [Recovered/Resolved]
  - Trigeminal neuralgia [Recovered/Resolved]
  - Weight increased [Not Recovered/Not Resolved]
  - Neuralgia [Recovered/Resolved]
  - Dysuria [Recovered/Resolved]
  - Sensory disturbance [Not Recovered/Not Resolved]
  - Mitral valve incompetence [Not Recovered/Not Resolved]
  - Bladder disorder [Not Recovered/Not Resolved]
  - Lymphocyte count decreased [Recovering/Resolving]
  - Hypersensitivity [Recovered/Resolved]
  - Neutrophil count increased [Recovered/Resolved]
  - Ovarian adenoma [Recovered/Resolved]
  - Paralysis [Recovered/Resolved]
  - Lung disorder [Recovered/Resolved]
  - COVID-19 [Not Recovered/Not Resolved]
  - Agitation [Recovered/Resolved]
  - Blood blister [Recovered/Resolved]
  - Multiple sclerosis [Not Recovered/Not Resolved]
  - Vocal cord inflammation [Recovered/Resolved]
  - Sinusitis [Recovered/Resolved]
  - Weight increased [Not Recovered/Not Resolved]
  - Blood immunoglobulin G decreased [Not Recovered/Not Resolved]
  - Blood immunoglobulin A decreased [Not Recovered/Not Resolved]
  - Blood immunoglobulin M decreased [Not Recovered/Not Resolved]
  - COVID-19 [Unknown]
  - Fatigue [Recovering/Resolving]
  - Visual impairment [Not Recovered/Not Resolved]

NARRATIVE: CASE EVENT DATE: 20180508
